FAERS Safety Report 4843901-2 (Version None)
Quarter: 2005Q4

REPORT INFORMATION
  Report Type: 
  Country: None (occurrence: None)
  Receive Date: 20051130
  Receipt Date: 20051130
  Transmission Date: 20060501
  Serious: Yes (Hospitalization)
  Sender: FDA-Public Use
  Company Number: None

PATIENT
  Sex: Male
  Weight: 80.2867 kg

DRUGS (6)
  1. RITUXIMAB    GENENTECH [Suspect]
     Indication: CHRONIC LYMPHOCYTIC LEUKAEMIA RECURRENT
     Dosage: 375 MG/M2    3 X WEEKLY   IV DRIP
     Route: 041
     Dates: start: 20051121, end: 20051125
  2. ETANERCEPT     AMGEN [Suspect]
     Indication: CHRONIC LYMPHOCYTIC LEUKAEMIA
     Dosage: 25 MG    TWICE WEEKLY   SQ
     Route: 058
     Dates: start: 20051114, end: 20051124
  3. DAPSONE [Concomitant]
  4. ALLOPURINOL [Concomitant]
  5. NEURONTIN [Concomitant]
  6. VALTREX [Concomitant]

REACTIONS (3)
  - CHILLS [None]
  - INTERSTITIAL LUNG DISEASE [None]
  - PYREXIA [None]
